FAERS Safety Report 5241350-9 (Version None)
Quarter: 2007Q1

REPORT INFORMATION
  Report Type: 
  Country: None (occurrence: None)
  Receive Date: 20070220
  Receipt Date: 20070207
  Transmission Date: 20070707
  Serious: Yes (Death)
  Sender: FDA-Public Use
  Company Number: US-ELI_LILLY_AND_COMPANY-US_0411107760

PATIENT
  Age: 38 Year
  Sex: Male

DRUGS (1)
  1. ZYPREXA [Suspect]
     Indication: ANXIETY
     Dosage: UNK, UNKNOWN
     Route: 048
     Dates: start: 20030101

REACTIONS (2)
  - DEATH [None]
  - DIABETES MELLITUS INSULIN-DEPENDENT [None]
